FAERS Safety Report 8082339-4 (Version None)
Quarter: 2012Q1

REPORT INFORMATION
  Report Type: 
  Country: None (occurrence: None)
  Receive Date: 20120127
  Receipt Date: 20110316
  Transmission Date: 20120608
  Serious: No
  Sender: FDA-Public Use
  Company Number: US-ABBOTT-11P-163-0705905-00

PATIENT
  Age: 27 Year
  Sex: Female

DRUGS (9)
  1. HUMIRA [Suspect]
     Dosage: 80MG
     Dates: start: 20110211, end: 20110211
  2. AMOXICILLIN [Suspect]
     Indication: PRODUCT USED FOR UNKNOWN INDICATION
  3. HUMIRA [Suspect]
     Indication: CROHN'S DISEASE
     Dosage: 160MG
     Dates: start: 20110128, end: 20110128
  4. ALBUTEROL [Suspect]
     Indication: PRODUCT USED FOR UNKNOWN INDICATION
  5. LORTAB [Concomitant]
     Indication: BACK PAIN
     Dosage: 10/500 Q 4-6HOURS
  6. LORTAB [Concomitant]
     Indication: ABDOMINAL PAIN
  7. PRILOSEC [Concomitant]
     Indication: GASTROOESOPHAGEAL REFLUX DISEASE
  8. HUMIRA [Suspect]
  9. ROBITUSSIN WITH CODEINE [Suspect]
     Indication: PRODUCT USED FOR UNKNOWN INDICATION

REACTIONS (8)
  - DECREASED APPETITE [None]
  - MALAISE [None]
  - ORAL DISCOMFORT [None]
  - BRONCHITIS [None]
  - PYREXIA [None]
  - INJECTION SITE PAIN [None]
  - ORAL MUCOSAL ERYTHEMA [None]
  - INJECTION SITE HAEMATOMA [None]
